FAERS Safety Report 13610706 (Version 3)
Quarter: 2017Q3

REPORT INFORMATION
  Report Type: Spontaneous
  Country: US (occurrence: US)
  Receive Date: 20170605
  Receipt Date: 20170816
  Transmission Date: 20171127
  Serious: Yes (Other)
  Sender: FDA-Public Use
  Company Number: US-UCBSA-2017021795

PATIENT
  Age: 58 Year
  Sex: Female

DRUGS (1)
  1. LEVOCETIRIZINE HYDROCHLORIDE [Suspect]
     Active Substance: LEVOCETIRIZINE HYDROCHLORIDE
     Indication: HYPERSENSITIVITY
     Dosage: 5 MG, ONCE DAILY (QD), TABLET
     Route: 048
     Dates: start: 20170507, end: 20170510

REACTIONS (6)
  - Stomatitis [Recovered/Resolved]
  - Burning sensation mucosal [Recovering/Resolving]
  - Chapped lips [Recovered/Resolved]
  - Lip dry [Recovering/Resolving]
  - Oral discomfort [Recovered/Resolved]
  - Cheilitis [Recovering/Resolving]

NARRATIVE: CASE EVENT DATE: 201705
